APPROVED DRUG PRODUCT: TRIMEPRAZINE TARTRATE
Active Ingredient: TRIMEPRAZINE TARTRATE
Strength: EQ 2.5MG BASE/5ML
Dosage Form/Route: SYRUP;ORAL
Application: A085015 | Product #001
Applicant: ALPHARMA US PHARMACEUTICALS DIVISION
Approved: Feb 18, 1982 | RLD: No | RS: No | Type: DISCN